FAERS Safety Report 23159260 (Version 1)
Quarter: 2023Q4

REPORT INFORMATION
  Report Type: Other
  Country: IT (occurrence: IT)
  Receive Date: 20231108
  Receipt Date: 20231108
  Transmission Date: 20240110
  Serious: Yes (Hospitalization, Other)
  Sender: FDA-Public Use
  Company Number: None

PATIENT

DRUGS (2)
  1. CEFIDEROCOL SULFATE TOSYLATE [Suspect]
     Active Substance: CEFIDEROCOL SULFATE TOSYLATE
     Indication: Acinetobacter infection
     Dosage: 2 G, 8 HOUR
     Route: 042
     Dates: start: 20230913, end: 20230925
  2. AMPICILLIN SODIUM [Concomitant]
     Active Substance: AMPICILLIN SODIUM
     Indication: Enterococcal infection
     Dosage: 4 G, 8 HOUR
     Route: 042
     Dates: start: 20230913, end: 20230925

REACTIONS (1)
  - Leukopenia [Recovering/Resolving]

NARRATIVE: CASE EVENT DATE: 20230924
